FAERS Safety Report 9679982 (Version 1)
Quarter: 2013Q4

REPORT INFORMATION
  Report Type: Spontaneous
  Country: ID (occurrence: ID)
  Receive Date: 20131110
  Receipt Date: 20131110
  Transmission Date: 20140711
  Serious: Yes (Death, Hospitalization)
  Sender: FDA-Public Use
  Company Number: PHHY2013ID126870

PATIENT
  Sex: Female

DRUGS (1)
  1. SEBIVO [Suspect]
     Indication: CHRONIC HEPATITIS B
     Dosage: UNK

REACTIONS (3)
  - Death [Fatal]
  - Fall [Unknown]
  - General physical health deterioration [Unknown]
